FAERS Safety Report 25342796 (Version 1)
Quarter: 2025Q2

REPORT INFORMATION
  Report Type: Spontaneous
  Country: US (occurrence: US)
  Receive Date: 20250521
  Receipt Date: 20250521
  Transmission Date: 20250717
  Serious: No
  Sender: FOUNDATION CONSUMER HEALTHCARE
  Company Number: US-FOUNDATIONCONSUMERHC-2024-US-043554

PATIENT
  Age: 27 Year
  Sex: Female
  Weight: 62.6 kg

DRUGS (4)
  1. PLAN B ONE-STEP [Suspect]
     Active Substance: LEVONORGESTREL
     Indication: Post coital contraception
     Route: 048
     Dates: start: 20240802, end: 20240802
  2. VITAMIN B12 [Concomitant]
     Active Substance: CYANOCOBALAMIN
  3. VITAMINS [Concomitant]
     Active Substance: VITAMINS
  4. BIOTIN [Concomitant]
     Active Substance: BIOTIN

REACTIONS (4)
  - Breast tenderness [Recovered/Resolved]
  - COVID-19 [Unknown]
  - Vaginal haemorrhage [Recovered/Resolved]
  - Vaginal haemorrhage [Not Recovered/Not Resolved]

NARRATIVE: CASE EVENT DATE: 20240811
